FAERS Safety Report 7971440-9 (Version None)
Quarter: 2011Q4

REPORT INFORMATION
  Report Type: 
  Country: None (occurrence: None)
  Receive Date: 20111212
  Receipt Date: 20111202
  Transmission Date: 20120403
  Serious: Yes (Other)
  Sender: FDA-Public Use
  Company Number: US-PFIZER INC-2011294986

PATIENT
  Sex: Female
  Weight: 108 kg

DRUGS (5)
  1. CORTISONE ACETATE [Suspect]
     Indication: ARTHRITIS
     Dosage: UNK
     Route: 050
     Dates: start: 20111101
  2. METFORMIN [Concomitant]
     Indication: DIABETES MELLITUS
     Dosage: 2000 MG (2 OF 1000), 2X/DAY
  3. NEXIUM [Concomitant]
     Dosage: 2 ESOMEPRAZOLE, 1X/DAY
  4. DEPO-MEDROL [Suspect]
     Indication: ARTHRITIS
     Dosage: 30 MG, UNK
     Dates: start: 20111101
  5. LOSARTAN [Concomitant]
     Indication: HYPERTENSION
     Dosage: UNK

REACTIONS (1)
  - BLOOD GLUCOSE INCREASED [None]
